FAERS Safety Report 9846436 (Version 3)
Quarter: 2014Q3

REPORT INFORMATION
  Report Type: Spontaneous
  Country: TR (occurrence: TR)
  Receive Date: 20140127
  Receipt Date: 20140915
  Transmission Date: 20150326
  Serious: Yes (Hospitalization)
  Sender: FDA-Public Use
  Company Number: TR-JNJFOC-20140114875

PATIENT
  Age: 40 Year
  Sex: Female
  Weight: 54 kg

DRUGS (1)
  1. ZALDIAR [Suspect]
     Active Substance: ACETAMINOPHEN\TRAMADOL HYDROCHLORIDE
     Indication: MUSCULOSKELETAL PAIN
     Route: 048
     Dates: start: 20131230, end: 20140106

REACTIONS (6)
  - Vision blurred [Not Recovered/Not Resolved]
  - Visual field defect [Not Recovered/Not Resolved]
  - Diplopia [Not Recovered/Not Resolved]
  - Photophobia [Not Recovered/Not Resolved]
  - Mydriasis [Not Recovered/Not Resolved]
  - Myopia [Not Recovered/Not Resolved]

NARRATIVE: CASE EVENT DATE: 20140106
